FAERS Safety Report 10209935 (Version 1)
Quarter: 2014Q2

REPORT INFORMATION
  Report Type: Spontaneous
  Country: FR (occurrence: FR)
  Receive Date: 20140602
  Receipt Date: 20140602
  Transmission Date: 20141212
  Serious: Yes (Other)
  Sender: FDA-Public Use
  Company Number: PHHY2014FR061937

PATIENT
  Sex: Female

DRUGS (6)
  1. NISISCO [Suspect]
     Indication: HYPERTENSION
     Dosage: 1 DF, IN ONE DAY
     Route: 048
     Dates: end: 20140325
  2. PANTOPRAZOLE [Concomitant]
     Dosage: UNK UKN, UNK
     Dates: start: 201306, end: 20140325
  3. LERCAN [Concomitant]
     Indication: HYPERTENSION
     Dosage: UNK UKN, UNK
     Dates: start: 201306, end: 20140325
  4. ADEPAL [Concomitant]
     Indication: CONSTIPATION
     Dosage: UNK UKN, UNK
     Dates: start: 201311
  5. LOXEN [Concomitant]
     Indication: HYPERTENSION
     Dosage: UNK UKN, UNK
     Dates: start: 20140325
  6. TRANDATE [Concomitant]
     Indication: HYPERTENSION
     Dosage: UNK UKN, UNK
     Dates: start: 20140325

REACTIONS (3)
  - Foetal growth restriction [Unknown]
  - Oligohydramnios [Recovered/Resolved]
  - Maternal exposure during pregnancy [Unknown]
